FAERS Safety Report 5448571-0 (Version None)
Quarter: 2007Q3

REPORT INFORMATION
  Report Type: 
  Country: None (occurrence: None)
  Receive Date: 20070911
  Receipt Date: 20070910
  Transmission Date: 20080115
  Serious: Yes (Other)
  Sender: FDA-Public Use
  Company Number: JP-BRISTOL-MYERS SQUIBB COMPANY-13874250

PATIENT
  Age: 31 Year

DRUGS (5)
  1. BLEOMYCIN [Suspect]
     Indication: HODGKIN'S DISEASE
  2. DOXORUBICIN [Suspect]
     Indication: HODGKIN'S DISEASE
  3. VINBLASTINE SULFATE [Suspect]
     Indication: HODGKIN'S DISEASE
  4. DACARBAZINE [Suspect]
     Indication: HODGKIN'S DISEASE
  5. RADIOTHERAPY [Concomitant]
     Indication: HODGKIN'S DISEASE

REACTIONS (1)
  - ACUTE MYELOID LEUKAEMIA [None]
